FAERS Safety Report 9854789 (Version 1)
Quarter: 2014Q1

REPORT INFORMATION
  Report Type: Spontaneous
  Country: US (occurrence: US)
  Receive Date: 20140130
  Receipt Date: 20140130
  Transmission Date: 20141002
  Serious: No
  Sender: FDA-Public Use
  Company Number: US-PFIZER INC-2014028258

PATIENT
  Sex: Female

DRUGS (2)
  1. LYRICA [Suspect]
     Dosage: UNK
     Dates: start: 2005
  2. LYRICA [Suspect]
     Dosage: 25 MG, DAILY
     Dates: end: 201401

REACTIONS (3)
  - Feeling abnormal [Unknown]
  - Disturbance in attention [Unknown]
  - Speech disorder [Unknown]
